FAERS Safety Report 15641371 (Version 2)
Quarter: 2019Q1

REPORT INFORMATION
  Report Type: Report from Study
  Country: US (occurrence: US)
  Receive Date: 20181120
  Receipt Date: 20190107
  Transmission Date: 20190417
  Serious: Yes (Hospitalization, Other)
  Sender: FDA-Public Use
  Company Number: US-GILEAD-2018-0371245

PATIENT
  Age: 71 Year
  Sex: Female
  Weight: 55.33 kg

DRUGS (22)
  1. AMBRISENTAN [Suspect]
     Active Substance: AMBRISENTAN
     Indication: SCLERODERMA
     Dosage: 5 MG, UNK
     Route: 065
  2. SYNTHROID [Concomitant]
     Active Substance: LEVOTHYROXINE SODIUM
  3. MELATONIN [Concomitant]
     Active Substance: MELATONIN
  4. MULTIVITAMIN [VITAMINS NOS] [Concomitant]
  5. KLOR-CON [Concomitant]
     Active Substance: POTASSIUM CHLORIDE
  6. PROBIOTIC 4 [Concomitant]
  7. ATORVASTATIN [Concomitant]
     Active Substance: ATORVASTATIN
  8. DILTIAZEM XR [Concomitant]
     Active Substance: DILTIAZEM
  9. ASPIRIN 81 [Concomitant]
     Active Substance: ASPIRIN
  10. CALCIUM + VIT D [Concomitant]
     Active Substance: CALCIUM\VITAMIN D
  11. FERROUS SULFATE. [Concomitant]
     Active Substance: FERROUS SULFATE
  12. FUROSEMIDE. [Concomitant]
     Active Substance: FUROSEMIDE
  13. OMEGA 3 FISH OILS [Concomitant]
     Active Substance: OMEGA-3 FATTY ACIDS
  14. MICRO-K [Concomitant]
     Active Substance: POTASSIUM CHLORIDE
  15. UBIQUINOL CO Q10 [Concomitant]
  16. CYANOCOBALAMIN. [Concomitant]
     Active Substance: CYANOCOBALAMIN
  17. OXYGEN. [Concomitant]
     Active Substance: OXYGEN
  18. AMBRISENTAN [Suspect]
     Active Substance: AMBRISENTAN
     Indication: PULMONARY ARTERIAL HYPERTENSION
     Dosage: 10 MG, QD
     Route: 065
     Dates: start: 20180701
  19. FLUTICASONE. [Concomitant]
     Active Substance: FLUTICASONE
  20. PANTOPRAZOLE [Concomitant]
     Active Substance: PANTOPRAZOLE
  21. SILDENAFIL. [Concomitant]
     Active Substance: SILDENAFIL
  22. SILVER SULFADIAZINE. [Concomitant]
     Active Substance: SILVER SULFADIAZINE

REACTIONS (6)
  - Asthenia [Recovered/Resolved]
  - Right ventricular systolic pressure increased [Recovered/Resolved]
  - Dyspnoea [Recovered/Resolved]
  - Cardiac failure acute [Recovering/Resolving]
  - Pneumonia [Unknown]
  - Joint swelling [Recovered/Resolved]

NARRATIVE: CASE EVENT DATE: 20181023
